FAERS Safety Report 8418546-8 (Version None)
Quarter: 2012Q2

REPORT INFORMATION
  Report Type: 
  Country: None (occurrence: None)
  Receive Date: 20120607
  Receipt Date: 20120530
  Transmission Date: 20120825
  Serious: Yes (Other)
  Sender: FDA-Public Use
  Company Number: US-ASTRAZENECA-2011SE32271

PATIENT
  Sex: Female

DRUGS (4)
  1. ALENDRONATE SODIUM [Concomitant]
  2. NEXIUM [Suspect]
     Route: 048
  3. NEXIUM [Suspect]
     Dosage: TWICE DAILY
     Route: 048
     Dates: start: 20050101
  4. VITAMIN D [Concomitant]

REACTIONS (3)
  - BONE DENSITY DECREASED [None]
  - OSTEOPOROSIS [None]
  - MULTIPLE FRACTURES [None]
